FAERS Safety Report 8784849 (Version 1)
Quarter: 2012Q4

REPORT INFORMATION
  Report Type: Spontaneous
  Country: US (occurrence: None)
  Receive Date: 20120907
  Receipt Date: 20120907
  Transmission Date: 20130627
  Serious: Yes (Other)
  Sender: FDA-Public Use
  Company Number: None

PATIENT
  Age: 61 Year
  Sex: Female
  Weight: 76.2 kg

DRUGS (1)
  1. OMNIPAQUE [Suspect]

REACTIONS (1)
  - Drug hypersensitivity [None]
